FAERS Safety Report 9853185 (Version 2)
Quarter: 2014Q1

REPORT INFORMATION
  Report Type: Spontaneous
  Country: ES (occurrence: ES)
  Receive Date: 20140129
  Receipt Date: 20140129
  Transmission Date: 20141002
  Serious: Yes (Hospitalization)
  Sender: FDA-Public Use
  Company Number: ALCN2013ES006358

PATIENT
  Age: 70 Year
  Sex: Female

DRUGS (9)
  1. COLIRCUSI ANESTISICO DOBLE [Suspect]
     Indication: CATARACT OPERATION
     Dosage: 2 GTT, ONCE/SINGLE
     Route: 047
     Dates: start: 20101117, end: 20101117
  2. COLIRCUSI GENTADEXA [Suspect]
     Indication: CATARACT OPERATION
     Dosage: 1 DF, ONCE/SINGLE
     Route: 047
     Dates: start: 20101117, end: 20101117
  3. BETADINE [Suspect]
     Dosage: 1 DF, ONCE/SINGLE
     Route: 047
     Dates: start: 20101117, end: 20101117
  4. BETADINE [Suspect]
     Dosage: 1 DF, ONCE/SINGLE
     Route: 061
     Dates: start: 20131117, end: 20131117
  5. CEFUROXIME [Suspect]
     Indication: CATARACT OPERATION
     Dosage: 10 MG/ML, ONCE/SINGLE
     Route: 065
     Dates: start: 20101117, end: 20101117
  6. LACTATE RINGER [Suspect]
     Indication: CATARACT OPERATION
     Dosage: 1 DF, ONCE/SINGLE
     Route: 065
     Dates: start: 20101117, end: 20101117
  7. LACTATE RINGER [Suspect]
     Dosage: 1 DF, ONCE/SINGLE
     Route: 065
     Dates: start: 20101117, end: 20101117
  8. LIDOCAINE [Suspect]
     Indication: CATARACT OPERATION
     Dosage: 1 DF, UNK
     Route: 065
     Dates: start: 20101117, end: 20101117
  9. ADRENALIN [Suspect]
     Indication: CATARACT OPERATION
     Dosage: 0.5 MG, ONCE/SINGLE
     Route: 065
     Dates: start: 20101117, end: 20101117

REACTIONS (1)
  - Toxic anterior segment syndrome [Recovered/Resolved with Sequelae]
